FAERS Safety Report 5150851-3 (Version None)
Quarter: 2006Q4

REPORT INFORMATION
  Report Type: 
  Country: None (occurrence: None)
  Receive Date: 20061114
  Receipt Date: 20061101
  Transmission Date: 20070319
  Serious: Yes (Disabling, Other)
  Sender: FDA-Public Use
  Company Number: US-ELI_LILLY_AND_COMPANY-US200611000566

PATIENT
  Age: 48 Year
  Sex: Female

DRUGS (3)
  1. HUMULIN N [Suspect]
     Indication: DIABETES MELLITUS INSULIN-DEPENDENT
     Dosage: 9 U, EACH MORNING
     Route: 058
     Dates: start: 19800101
  2. HUMULIN N [Suspect]
     Dosage: 5 U, EACH EVENING
     Dates: start: 19800101
  3. HUMALOG [Suspect]
     Indication: DIABETES MELLITUS INSULIN-DEPENDENT
     Dosage: SLIDING SCALE
     Route: 058
     Dates: start: 20040101

REACTIONS (6)
  - BLINDNESS [None]
  - BLOOD GLUCOSE DECREASED [None]
  - DIABETIC RETINOPATHY [None]
  - IMPAIRED GASTRIC EMPTYING [None]
  - LOSS OF CONSCIOUSNESS [None]
  - PHARMACEUTICAL PRODUCT COMPLAINT [None]
